FAERS Safety Report 5234300-2 (Version None)
Quarter: 2007Q1

REPORT INFORMATION
  Report Type: 
  Country: None (occurrence: None)
  Receive Date: 20070209
  Receipt Date: 20070131
  Transmission Date: 20070707
  Serious: Yes (Hospitalization, Disabling, Other)
  Sender: FDA-Public Use
  Company Number: GB-AVENTIS-200711005GDDC

PATIENT
  Age: 80 Year
  Sex: Female
  Weight: 49 kg

DRUGS (7)
  1. ARAVA [Suspect]
     Route: 048
     Dates: start: 20061030
  2. ARAVA [Suspect]
     Route: 048
     Dates: end: 20061201
  3. ASPIRIN [Concomitant]
     Route: 048
     Dates: start: 20060109
  4. LEVOTHYROXINE SODIUM [Concomitant]
     Route: 048
     Dates: start: 20040630
  5. PARACETAMOL [Concomitant]
     Route: 048
     Dates: start: 19900101
  6. PREDNISOLONE [Concomitant]
     Route: 048
     Dates: start: 20060109
  7. RISENDRONATE SODIUM [Concomitant]
     Route: 048
     Dates: start: 20030807

REACTIONS (1)
  - CONFUSIONAL STATE [None]
